FAERS Safety Report 6795537-4 (Version None)
Quarter: 2010Q2

REPORT INFORMATION
  Report Type: 
  Country: None (occurrence: None)
  Receive Date: 20100622
  Receipt Date: 20100611
  Transmission Date: 20101027
  Serious: Yes (Life-Threatening)
  Sender: FDA-Public Use
  Company Number: 2010AL003535

PATIENT
  Sex: Female

DRUGS (6)
  1. VENLAFAXINE HYDROCHLORIDE [Suspect]
     Indication: ANXIETY
     Dosage: 75 MG; PO
     Route: 048
     Dates: start: 20100101, end: 20100401
  2. ZOPICLONE [Concomitant]
  3. TRIMETHOPRIM [Concomitant]
  4. LANSOPRAZOLE [Concomitant]
  5. LAXIDO [Concomitant]
  6. ALCOHOL [Concomitant]

REACTIONS (3)
  - AMNESIA [None]
  - ROAD TRAFFIC ACCIDENT [None]
  - SOMNAMBULISM [None]
